FAERS Safety Report 22383118 (Version 8)
Quarter: 2023Q4

REPORT INFORMATION
  Report Type: Report from Study
  Country: FR (occurrence: FR)
  Receive Date: 20230530
  Receipt Date: 20231006
  Transmission Date: 20240109
  Serious: Yes (Life-Threatening, Hospitalization, Disabling)
  Sender: FDA-Public Use
  Company Number: FR-JNJFOC-20230553553

PATIENT
  Age: 62 Year
  Sex: Male
  Weight: 105 kg

DRUGS (5)
  1. TECLISTAMAB [Suspect]
     Active Substance: TECLISTAMAB
     Indication: Plasma cell myeloma refractory
     Dosage: ENROLLMENT/PRIMING DOSE 1  MED KIT NO. 711924, 711925, 711926
     Route: 058
     Dates: start: 20230227, end: 20230227
  2. TECLISTAMAB [Suspect]
     Active Substance: TECLISTAMAB
     Dosage: PRIMING DOSE 2 MED KIT NUMBER 707243
     Route: 058
     Dates: start: 20230302, end: 20230302
  3. TECLISTAMAB [Suspect]
     Active Substance: TECLISTAMAB
     Dosage: PRIMING DOSE 3 MED KIT NUMBER 707255, 707256
     Route: 058
     Dates: start: 20230306, end: 20230306
  4. TECLISTAMAB [Suspect]
     Active Substance: TECLISTAMAB
     Dosage: CYCLE 1 DAY 1, MED KIT NUMBER 707281, 707282, 707283
     Route: 058
     Dates: start: 20230308, end: 20230308
  5. TECLISTAMAB [Suspect]
     Active Substance: TECLISTAMAB
     Dosage: CYCLE 2 DAY 1, MED KIT NUMBER 711924, 711925, 711926
     Route: 058
     Dates: start: 20230417, end: 20230417

REACTIONS (2)
  - Pneumocystis jirovecii pneumonia [Recovered/Resolved]
  - Neuromyopathy [Recovered/Resolved]

NARRATIVE: CASE EVENT DATE: 20230517
